FAERS Safety Report 4348290-8 (Version None)
Quarter: 2004Q1

REPORT INFORMATION
  Report Type: 
  Country: None (occurrence: None)
  Receive Date: 20040325
  Receipt Date: 20031229
  Transmission Date: 20041129
  Serious: No
  Sender: FDA-Public Use
  Company Number: USA031151445

PATIENT
  Age: 72 Year
  Sex: Female

DRUGS (8)
  1. FORTEO [Suspect]
     Indication: OSTEOPOROSIS
     Dosage: 60 UG/DAY
  2. EVISTA [Concomitant]
  3. PROZAC [Concomitant]
  4. COLAZAL (BALSALAZIDE SODIUM) [Concomitant]
  5. IRON [Concomitant]
  6. ACTONEL [Concomitant]
  7. LEVOXYL [Concomitant]
  8. CALCIUM [Concomitant]

REACTIONS (1)
  - URTICARIA [None]
